FAERS Safety Report 10163836 (Version 1)
Quarter: 2014Q2

REPORT INFORMATION
  Report Type: Spontaneous
  Country: US (occurrence: US)
  Receive Date: 20140509
  Receipt Date: 20140509
  Transmission Date: 20141212
  Serious: Yes (Hospitalization)
  Sender: FDA-Public Use
  Company Number: US-ASTRAZENECA-2014SE31302

PATIENT
  Age: 55 Year
  Sex: Male

DRUGS (4)
  1. QUETIAPINE [Suspect]
     Route: 048
  2. ARIPIPRAZOLE [Suspect]
  3. ZIPRASIDONE [Suspect]
  4. LITHIUM [Concomitant]

REACTIONS (2)
  - Neuroleptic malignant syndrome [Unknown]
  - Intentional product misuse [Unknown]
